FAERS Safety Report 5827502-5 (Version None)
Quarter: 2008Q3

REPORT INFORMATION
  Report Type: 
  Country: None (occurrence: None)
  Receive Date: 20080730
  Receipt Date: 20080724
  Transmission Date: 20090109
  Serious: Yes (Life-Threatening)
  Sender: FDA-Public Use
  Company Number: AU-ASTRAZENECA-2008AP05632

PATIENT
  Age: 16 Year
  Sex: Female

DRUGS (3)
  1. QUETIAPINE FUMARATE [Suspect]
     Route: 048
  2. FLUOXETINE HYDROCHLORIDE [Suspect]
  3. ZOLOFT [Concomitant]

REACTIONS (9)
  - AGGRESSION [None]
  - DIARRHOEA [None]
  - HEADACHE [None]
  - HYPERHIDROSIS [None]
  - INTENTIONAL OVERDOSE [None]
  - INTENTIONAL SELF-INJURY [None]
  - NAUSEA [None]
  - SELF INJURIOUS BEHAVIOUR [None]
  - SUICIDE ATTEMPT [None]
